FAERS Safety Report 17578282 (Version 1)
Quarter: 2020Q1

REPORT INFORMATION
  Report Type: Spontaneous
  Country: US (occurrence: US)
  Receive Date: 20200324
  Receipt Date: 20200324
  Transmission Date: 20200409
  Serious: No
  Sender: FDA-Public Use
  Company Number: US-ELI_LILLY_AND_COMPANY-US202002011823

PATIENT
  Age: 58 Year
  Sex: Female

DRUGS (2)
  1. SUMATRIPTAN. [Concomitant]
     Active Substance: SUMATRIPTAN
     Dosage: UNK, UNKNOWN
     Route: 065
  2. EMGALITY [Suspect]
     Active Substance: GALCANEZUMAB-GNLM
     Indication: MIGRAINE
     Dosage: 120 MG, MONTHLY (1/M)
     Route: 065
     Dates: start: 201910

REACTIONS (5)
  - Bronchitis [Recovered/Resolved]
  - Food intolerance [Unknown]
  - Incontinence [Unknown]
  - Inappropriate schedule of product administration [Unknown]
  - Migraine [Unknown]

NARRATIVE: CASE EVENT DATE: 20200224
